FAERS Safety Report 4846912-6 (Version None)
Quarter: 2005Q4

REPORT INFORMATION
  Report Type: 
  Country: None (occurrence: None)
  Receive Date: 20051202
  Receipt Date: 20051121
  Transmission Date: 20060501
  Serious: Yes (Hospitalization)
  Sender: FDA-Public Use
  Company Number: 2005EU002597

PATIENT
  Sex: Male

DRUGS (1)
  1. PROGRAF [Suspect]
     Indication: LIVER TRANSPLANT
     Dosage: 2 MG /D ORAL
     Route: 048
     Dates: start: 19980101

REACTIONS (3)
  - CONFUSIONAL STATE [None]
  - CONVULSION [None]
  - HYDROCEPHALUS [None]
